FAERS Safety Report 18136502 (Version 1)
Quarter: 2020Q3

REPORT INFORMATION
  Report Type: Spontaneous
  Country: DE (occurrence: DE)
  Receive Date: 20200811
  Receipt Date: 20200811
  Transmission Date: 20201103
  Serious: Yes (Other)
  Sender: FDA-Public Use
  Company Number: DE-ASTRAZENECA-2020SE71935

PATIENT
  Sex: Female

DRUGS (6)
  1. DAXAS [Suspect]
     Active Substance: ROFLUMILAST
     Dosage: 250.0UG UNKNOWN
     Route: 048
  2. BISOHEXAL [Concomitant]
     Active Substance: BISOPROLOL FUMARATE
  3. ASPIRIN. [Concomitant]
     Active Substance: ASPIRIN
  4. TOREM [Concomitant]
     Active Substance: TORSEMIDE
  5. ALDACTONE [Concomitant]
     Active Substance: SPIRONOLACTONE
  6. DAXAS [Suspect]
     Active Substance: ROFLUMILAST
     Dosage: 500.0UG UNKNOWN
     Route: 048

REACTIONS (13)
  - SARS-CoV-2 test negative [Unknown]
  - Hypotension [Unknown]
  - Infection [Recovered/Resolved]
  - Hypertensive heart disease [Unknown]
  - Headache [Recovered/Resolved]
  - Autoimmune thyroiditis [Unknown]
  - Arteriosclerosis coronary artery [Unknown]
  - Tachycardia [Recovered/Resolved]
  - Diarrhoea [Recovered/Resolved]
  - Coronary artery disease [Unknown]
  - Respiratory failure [Unknown]
  - Chronic obstructive pulmonary disease [Unknown]
  - Myalgia [Recovered/Resolved]
